FAERS Safety Report 7036129-1 (Version None)
Quarter: 2010Q4

REPORT INFORMATION
  Report Type: 
  Country: None (occurrence: None)
  Receive Date: 20101008
  Receipt Date: 20100106
  Transmission Date: 20110411
  Serious: No
  Sender: FDA-Public Use
  Company Number: US-BRISTOL-MYERS SQUIBB COMPANY-14927339

PATIENT
  Age: 84 Year
  Sex: Female

DRUGS (3)
  1. AVAPRO [Suspect]
     Indication: HYPERTENSION
     Dosage: DURATION 6-7 YEARS;INITIALL Y TAKEN 150MG THEN DOSE REDUCED TO 75MG;
  2. AVAPRO [Suspect]
     Indication: CARDIAC FAILURE CONGESTIVE
     Dosage: DURATION 6-7 YEARS;INITIALL Y TAKEN 150MG THEN DOSE REDUCED TO 75MG;
  3. DARVON [Suspect]

REACTIONS (5)
  - BLOOD PRESSURE DECREASED [None]
  - CONFUSIONAL STATE [None]
  - CONSTIPATION [None]
  - DYSPNOEA [None]
  - VISION BLURRED [None]
